FAERS Safety Report 8413727-1 (Version None)
Quarter: 2012Q2

REPORT INFORMATION
  Report Type: 
  Country: None (occurrence: None)
  Receive Date: 20120605
  Receipt Date: 20120530
  Transmission Date: 20120825
  Serious: Yes (Hospitalization)
  Sender: FDA-Public Use
  Company Number: GB-PFIZER INC-2012102033

PATIENT
  Age: 65 Year
  Sex: Female

DRUGS (14)
  1. GAVISCON [Concomitant]
     Indication: PRODUCT USED FOR UNKNOWN INDICATION
     Dosage: 1 DF 5-10MLS FOUR TIMES DAILY
     Route: 048
  2. ACETYLSALICYLIC ACID [Concomitant]
     Indication: PRODUCT USED FOR UNKNOWN INDICATION
     Dosage: 75 MG, 1X/DAY
  3. ATORVASTATIN CALCIUM [Concomitant]
     Indication: PRODUCT USED FOR UNKNOWN INDICATION
     Dosage: 60MG ONCE PER DAY, 20MG AND 40MG
  4. AMLODIPINE BESYLATE [Suspect]
     Indication: HYPERTENSION
     Dosage: 5 MG, 1X/DAY LONGTERM IN THE MORNING
     Route: 048
  5. RAMIPRIL [Suspect]
     Indication: DIABETES MELLITUS
     Dosage: 5 MG, 1X/DAY IN THE MORNING
     Route: 048
  6. VENTOLIN [Concomitant]
     Indication: PRODUCT USED FOR UNKNOWN INDICATION
     Dosage: 2 DF,  AS REQUIRED
     Route: 055
  7. GLICLAZIDE [Concomitant]
     Indication: PRODUCT USED FOR UNKNOWN INDICATION
     Dosage: 40 MG, 1X/DAY
  8. CALOGEN [Concomitant]
     Dosage: 30 ML, 3X/DAY
  9. ENSURE PLUS [Concomitant]
  10. RAMIPRIL [Suspect]
     Indication: HYPERTENSION
     Dosage: 10 MG, 1X/DAY
     Route: 048
  11. CALCIUM W/COLECALCIFEROL [Concomitant]
     Indication: PRODUCT USED FOR UNKNOWN INDICATION
     Dosage: 1DF 2X DAY, 1.5G/400UNIT
  12. TPN [Concomitant]
     Indication: PRODUCT USED FOR UNKNOWN INDICATION
  13. OMEPRAZOLE [Concomitant]
     Indication: PRODUCT USED FOR UNKNOWN INDICATION
     Dosage: 20 MG, 1X/DAY
  14. BETA BLOCKING AGENTS [Concomitant]

REACTIONS (3)
  - FALL [None]
  - JOINT SWELLING [None]
  - HYPOTENSION [None]
